FAERS Safety Report 18921788 (Version 1)
Quarter: 2021Q1

REPORT INFORMATION
  Report Type: Spontaneous
  Country: US (occurrence: US)
  Receive Date: 20210219
  Receipt Date: 20210219
  Transmission Date: 20210420
  Serious: Yes (Disabling)
  Sender: FDA-Public Use
  Company Number: None

PATIENT
  Age: 70 Year
  Sex: Female
  Weight: 59.4 kg

DRUGS (1)
  1. ESCITALOPRAM 10 MG GENERIC FOR: LEXAPRO10 MG [Suspect]
     Active Substance: ESCITALOPRAM OXALATE
     Indication: ANXIETY
     Dosage: ?          QUANTITY:1 TABLET(S);?
     Route: 048
     Dates: start: 20210110, end: 20210209

REACTIONS (3)
  - Urticaria [None]
  - Headache [None]
  - Fear [None]

NARRATIVE: CASE EVENT DATE: 20210120
